FAERS Safety Report 4595349-6 (Version None)
Quarter: 2005Q1

REPORT INFORMATION
  Report Type: 
  Country: None (occurrence: None)
  Receive Date: 20050223
  Receipt Date: 20050207
  Transmission Date: 20050727
  Serious: Yes (Hospitalization)
  Sender: FDA-Public Use
  Company Number: 2004IM000339

PATIENT
  Age: 52 Year
  Sex: Male

DRUGS (19)
  1. ADVAFERON (A643_INTERFERON ALFACON-1) [Suspect]
     Indication: CHRONIC HEPATITIS
     Dosage: 12 MU, QD, SUBCUTANEOUS
     Route: 058
     Dates: start: 20040121, end: 20040101
  2. RIBAVIRIN [Suspect]
     Indication: CHRONIC HEPATITIS
     Dosage: 400 MG, BID, SUBCUTANEOUS
     Route: 058
     Dates: start: 20040121, end: 20040705
  3. RIBAVIRIN [Suspect]
  4. DIFLUCORTOLONE VALERATE [Concomitant]
  5. KETOCONAZOLE [Concomitant]
  6. HEPARINOID [Concomitant]
  7. FAMOTIDINE [Concomitant]
  8. S M POWDER [Concomitant]
  9. DICLOFENAC SODIUM [Concomitant]
  10. CLARITHROMYCIN [Concomitant]
  11. ALUMINIUM SILICATE [Concomitant]
  12. ALBUMIN TANNATE [Concomitant]
  13. LACTOBACILLUS BIFIDUS [Concomitant]
  14. POVIDONE IODINE [Concomitant]
  15. CEFDINAR [Concomitant]
  16. NETICONAZOLE [Concomitant]
  17. CEFOTIAM HYDROCHLORIDE [Concomitant]
  18. CEFCAPENE PIOVOXIL HYDROCHLORIDE [Concomitant]
  19. ZOPLICONE [Concomitant]

REACTIONS (8)
  - BACTERIAL INFECTION [None]
  - EATING DISORDER [None]
  - NASOPHARYNGEAL DISORDER [None]
  - NEUTROPHIL COUNT DECREASED [None]
  - PERITONSILLITIS [None]
  - PROSTATE CANCER [None]
  - PYREXIA [None]
  - WHITE BLOOD CELL COUNT DECREASED [None]
